FAERS Safety Report 8920613 (Version 1)
Quarter: 2012Q4

REPORT INFORMATION
  Report Type: 
  Country: US (occurrence: US)
  Receive Date: 20121122
  Receipt Date: 20121122
  Transmission Date: 20130627
  Serious: Yes (Hospitalization, Other)
  Sender: FDA-Public Use
  Company Number: US-PFIZER INC-2012290705

PATIENT
  Age: 20 Year
  Sex: Male
  Weight: 65 kg

DRUGS (1)
  1. BENEFIX [Suspect]
     Indication: FACTOR IX DEFICIENCY
     Dosage: UNK
     Route: 042

REACTIONS (3)
  - Road traffic accident [Unknown]
  - Haemorrhage [Unknown]
  - Coagulation factor IX level decreased [Unknown]
